FAERS Safety Report 5457000-2 (Version None)
Quarter: 2007Q3

REPORT INFORMATION
  Report Type: 
  Country: None (occurrence: None)
  Receive Date: 20070918
  Receipt Date: 20061213
  Transmission Date: 20080115
  Serious: No
  Sender: FDA-Public Use
  Company Number: US-ASTRAZENECA-2006UW27604

PATIENT

DRUGS (1)
  1. SEROQUEL [Suspect]
     Route: 048

REACTIONS (3)
  - ANAL SPHINCTER ATONY [None]
  - BLADDER SPHINCTER ATONY [None]
  - GASTROOESOPHAGEAL SPHINCTER INSUFFICIENCY [None]
